FAERS Safety Report 4316093-6 (Version None)
Quarter: 2004Q1

REPORT INFORMATION
  Report Type: 
  Country: None (occurrence: None)
  Receive Date: 20040310
  Receipt Date: 20040301
  Transmission Date: 20041129
  Serious: Yes (Hospitalization, Other)
  Sender: FDA-Public Use
  Company Number: FRWYE553203FEB04

PATIENT
  Age: 45 Year
  Sex: Female

DRUGS (3)
  1. TACROLIMUS, CONTROL FOR SIROLIMUS (TACROLIMUS, CONTROL FOR SIROLIMUS, [Suspect]
     Indication: PROPHYLAXIS AGAINST TRANSPLANT REJECTION
     Dosage: ORAL
     Route: 048
     Dates: start: 20030124
  2. CELLCEPT [Suspect]
     Indication: PROPHYLAXIS AGAINST TRANSPLANT REJECTION
     Dosage: ORAL
     Route: 048
     Dates: start: 20030124
  3. PREDNISONE [Suspect]
     Indication: PROPHYLAXIS AGAINST TRANSPLANT REJECTION
     Dosage: ORAL
     Route: 048
     Dates: start: 20030124

REACTIONS (4)
  - CATHETER RELATED COMPLICATION [None]
  - CULTURE URINE POSITIVE [None]
  - HAEMATURIA [None]
  - PYELONEPHRITIS [None]
